FAERS Safety Report 4472082-2 (Version None)
Quarter: 2004Q3

REPORT INFORMATION
  Report Type: 
  Country: None (occurrence: None)
  Receive Date: 20040909
  Receipt Date: 20040610
  Transmission Date: 20050211
  Serious: No
  Sender: FDA-Public Use
  Company Number: A03200401868

PATIENT
  Age: 72 Year
  Sex: Male

DRUGS (3)
  1. ELOXATIN [Suspect]
     Indication: COLON CANCER
     Dosage: INTRAVENOUS NOS
     Route: 042
     Dates: start: 20040601, end: 20040601
  2. FLUOROURACIL [Concomitant]
  3. LEUCOVORIN [Concomitant]

REACTIONS (1)
  - VISUAL BRIGHTNESS [None]
